FAERS Safety Report 7465055-9 (Version None)
Quarter: 2011Q2

REPORT INFORMATION
  Report Type: 
  Country: None (occurrence: None)
  Receive Date: 20110509
  Receipt Date: 20110429
  Transmission Date: 20111010
  Serious: No
  Sender: FDA-Public Use
  Company Number: US-ROXANE LABORATORIES, INC.-2011-RO-00625RO

PATIENT
  Sex: Female

DRUGS (1)
  1. ROXICET [Suspect]
     Indication: PROCEDURAL PAIN
     Route: 048
     Dates: start: 20110427

REACTIONS (1)
  - CHROMATURIA [None]
